FAERS Safety Report 12906933 (Version 2)
Quarter: 2016Q4

REPORT INFORMATION
  Report Type: Spontaneous
  Country: US (occurrence: US)
  Receive Date: 20161103
  Receipt Date: 20161227
  Transmission Date: 20170207
  Serious: Yes (Hospitalization, Other)
  Sender: FDA-Public Use
  Company Number: US-JNJFOC-20161022633

PATIENT
  Age: 60 Year
  Sex: Male
  Weight: 80.74 kg

DRUGS (6)
  1. REMICADE [Suspect]
     Active Substance: INFLIXIMAB
     Indication: PSORIATIC ARTHROPATHY
     Dosage: 5 VIALS - 500 MG
     Route: 042
     Dates: start: 20160607
  2. BONIVA [Concomitant]
     Active Substance: IBANDRONATE SODIUM
     Indication: PRODUCT USED FOR UNKNOWN INDICATION
     Route: 065
     Dates: start: 201609
  3. FOLIC ACID. [Concomitant]
     Active Substance: FOLIC ACID
     Indication: PRODUCT USED FOR UNKNOWN INDICATION
     Route: 048
     Dates: start: 2015
  4. RASUVO [Concomitant]
     Active Substance: METHOTREXATE SODIUM
     Indication: PSORIATIC ARTHROPATHY
     Route: 030
     Dates: start: 2015
  5. REMICADE [Suspect]
     Active Substance: INFLIXIMAB
     Indication: PSORIATIC ARTHROPATHY
     Dosage: 4 VIALS - 400 MG
     Route: 042
     Dates: start: 20150821, end: 20160607
  6. VITAMIN D [Concomitant]
     Active Substance: CHOLECALCIFEROL
     Indication: PROPHYLAXIS
     Dosage: 50,000 UNITS
     Route: 048
     Dates: start: 201609

REACTIONS (9)
  - Rash [Recovering/Resolving]
  - Postoperative wound infection [Unknown]
  - Off label use [Unknown]
  - Post procedural complication [Recovered/Resolved]
  - Psoriatic arthropathy [Not Recovered/Not Resolved]
  - Knee arthroplasty [Unknown]
  - Carpal tunnel syndrome [Not Recovered/Not Resolved]
  - Product use issue [Unknown]
  - Dysstasia [Unknown]

NARRATIVE: CASE EVENT DATE: 201508
